FAERS Safety Report 4744467-8 (Version None)
Quarter: 2005Q3

REPORT INFORMATION
  Report Type: 
  Country: None (occurrence: None)
  Receive Date: 20050809
  Receipt Date: 20050729
  Transmission Date: 20060218
  Serious: No
  Sender: FDA-Public Use
  Company Number: 05H-163-0301404-00

PATIENT

DRUGS (14)
  1. EPINEPHRINE 1:1000 INJECTION (EPINEPHRINE INJECTION) (EPINEPHRINE) [Suspect]
     Indication: ANALGESIC EFFECT
     Dosage: DILUTED TO 1:200,000, CAUDAL
  2. MARCAINE 0.25% INJECTION MARCAINE INJECTION) (BUPIVACAINE HYDROCHLORID [Suspect]
     Indication: ANALGESIC EFFECT
     Dosage: DILUTED TO 0.125%, CAUDAL
  3. CLONIDINE [Suspect]
     Indication: ANALGESIC EFFECT
     Dosage: 2 MCG/KG, CAUDAL
  4. SEVOFLURANE [Concomitant]
  5. NITROUS OXIDE (NITROUS OXIDE) [Concomitant]
  6. OXYGEN (OXYGEN) [Concomitant]
  7. ROCURONIUM (ROCURONIUM) [Concomitant]
  8. IMAC ISOFLURANE (ISOFLURANE) [Concomitant]
  9. 67% NITROUS OXIDE (NITROUS OXIDE) [Concomitant]
  10. 0.5 MAC ISOFLURANE (ISOFLURANE) [Concomitant]
  11. RINGER'S LACTATE (SODIUM CHLORIDE COMPOUND INJECTION) [Concomitant]
  12. NEOSTIGMINE (NEOSTIGMINE) [Concomitant]
  13. GLYCOPYRROLATE [Concomitant]
  14. SODIUM CHLORIDE 0.9% [Concomitant]

REACTIONS (1)
  - HYPOTENSION [None]
